FAERS Safety Report 22840935 (Version 6)
Quarter: 2024Q1

REPORT INFORMATION
  Report Type: Spontaneous
  Country: US (occurrence: US)
  Receive Date: 20230819
  Receipt Date: 20240103
  Transmission Date: 20240410
  Serious: Yes (Hospitalization, Other)
  Sender: FDA-Public Use
  Company Number: US-ALXN-A202310565

PATIENT
  Sex: Female

DRUGS (3)
  1. SOLIRIS [Suspect]
     Active Substance: ECULIZUMAB
     Indication: Atypical haemolytic uraemic syndrome
     Dosage: UNK
     Route: 065
     Dates: end: 20230905
  2. ULTOMIRIS [Suspect]
     Active Substance: RAVULIZUMAB-CWVZ
     Indication: Atypical haemolytic uraemic syndrome
     Dosage: UNK
     Route: 065
  3. ULTOMIRIS [Suspect]
     Active Substance: RAVULIZUMAB-CWVZ
     Dosage: 300 MG, UNK
     Route: 065

REACTIONS (8)
  - Lung disorder [Unknown]
  - Acute kidney injury [Unknown]
  - Systemic lupus erythematosus [Unknown]
  - Haemoglobin decreased [Unknown]
  - Haemolysis [Unknown]
  - Malaise [Unknown]
  - Drug ineffective [Unknown]
  - Illness [Unknown]
